FAERS Safety Report 21016779 (Version 1)
Quarter: 2022Q2

REPORT INFORMATION
  Report Type: Spontaneous
  Country: US (occurrence: None)
  Receive Date: 20220627
  Receipt Date: 20220627
  Transmission Date: 20220721
  Serious: Yes (unspecified)
  Sender: FDA-Public Use
  Company Number: None

PATIENT
  Age: 66 Year
  Sex: Female

DRUGS (1)
  1. GENTEAL TEARS [Suspect]
     Active Substance: DEXTRAN 70\HYPROMELLOSE 2910 (4000 MPA.S)
     Indication: Product used for unknown indication
     Route: 001

REACTIONS (5)
  - Eye swelling [None]
  - Ocular hyperaemia [None]
  - Eye pruritus [None]
  - Eye irritation [None]
  - Instillation site reaction [None]

NARRATIVE: CASE EVENT DATE: 20220627
